FAERS Safety Report 16068817 (Version 2)
Quarter: 2019Q2

REPORT INFORMATION
  Report Type: Spontaneous
  Country: US (occurrence: US)
  Receive Date: 20190313
  Receipt Date: 20190409
  Transmission Date: 20190711
  Serious: No
  Sender: FDA-Public Use
  Company Number: US-ASTRAZENECA-2019SE24884

PATIENT
  Age: 23634 Day
  Sex: Male

DRUGS (1)
  1. TUDORZA PRESSAIR [Suspect]
     Active Substance: ACLIDINIUM BROMIDE
     Dosage: 400.0UG UNKNOWN
     Route: 055
     Dates: start: 201812

REACTIONS (4)
  - Device issue [Unknown]
  - Device malfunction [Unknown]
  - Dysgeusia [Unknown]
  - Product dose omission [Unknown]

NARRATIVE: CASE EVENT DATE: 20190211
